FAERS Safety Report 4337445-4 (Version None)
Quarter: 2004Q2

REPORT INFORMATION
  Report Type: 
  Country: None (occurrence: None)
  Receive Date: 20040408
  Receipt Date: 20040401
  Transmission Date: 20050107
  Serious: Yes (Hospitalization)
  Sender: FDA-Public Use
  Company Number: IT-JNJFOC-20040400680

PATIENT
  Age: 50 Year
  Sex: Female

DRUGS (3)
  1. REMICADE [Suspect]
     Indication: DRUG USE FOR UNKNOWN INDICATION
     Dosage: 300 MG, INTRAVENOUS
     Route: 042
     Dates: start: 20030619, end: 20030703
  2. TRIMETON (CHLORPHENAMINE MALEATE) [Concomitant]
  3. FLEBOCORTID (HYDROCORTISONE SODIUM SUCCINATE) [Concomitant]

REACTIONS (1)
  - HYPERSENSITIVITY [None]
